FAERS Safety Report 4323121-0 (Version None)
Quarter: 2004Q1

REPORT INFORMATION
  Report Type: 
  Country: None (occurrence: None)
  Receive Date: 20040322
  Receipt Date: 20040304
  Transmission Date: 20041129
  Serious: Yes (Hospitalization)
  Sender: FDA-Public Use
  Company Number: 102715ISR

PATIENT
  Age: 39 Year
  Sex: Female

DRUGS (1)
  1. GLATIRAMER ACETATE [Suspect]
     Indication: MULTIPLE SCLEROSIS
     Dosage: 20 MILLIGRAM SUBCUTANEOUS
     Route: 058
     Dates: start: 20030411

REACTIONS (5)
  - FLUSHING [None]
  - PALPITATIONS [None]
  - POST PROCEDURAL COMPLICATION [None]
  - UTERINE HAEMORRHAGE [None]
  - UTERINE SPASM [None]
